FAERS Safety Report 10507005 (Version 1)
Quarter: 2014Q4

REPORT INFORMATION
  Report Type: Spontaneous
  Country: AT (occurrence: AT)
  Receive Date: 20141009
  Receipt Date: 20141009
  Transmission Date: 20150528
  Serious: Yes (Other)
  Sender: FDA-Public Use
  Company Number: AT-JNJFOC-20141000204

PATIENT
  Sex: Female

DRUGS (10)
  1. XEPLION [Suspect]
     Active Substance: PALIPERIDONE PALMITATE
     Indication: KLEPTOMANIA
     Route: 030
     Dates: start: 20140315
  2. XEPLION [Suspect]
     Active Substance: PALIPERIDONE PALMITATE
     Indication: COMPULSIVE HANDWASHING
     Route: 030
     Dates: start: 20140315
  3. XEPLION [Suspect]
     Active Substance: PALIPERIDONE PALMITATE
     Indication: KLEPTOMANIA
     Route: 030
     Dates: start: 20140508
  4. XEPLION [Suspect]
     Active Substance: PALIPERIDONE PALMITATE
     Indication: KLEPTOMANIA
     Route: 030
     Dates: start: 20140409
  5. XEPLION [Suspect]
     Active Substance: PALIPERIDONE PALMITATE
     Indication: COMPULSIVE HANDWASHING
     Route: 030
     Dates: start: 20140409
  6. XEPLION [Suspect]
     Active Substance: PALIPERIDONE PALMITATE
     Indication: KLEPTOMANIA
     Route: 030
     Dates: start: 20140207
  7. XEPLION [Suspect]
     Active Substance: PALIPERIDONE PALMITATE
     Indication: COMPULSIVE HANDWASHING
     Route: 030
     Dates: start: 20140218
  8. XEPLION [Suspect]
     Active Substance: PALIPERIDONE PALMITATE
     Indication: COMPULSIVE HANDWASHING
     Route: 030
     Dates: start: 20140207
  9. XEPLION [Suspect]
     Active Substance: PALIPERIDONE PALMITATE
     Indication: COMPULSIVE HANDWASHING
     Route: 030
     Dates: start: 20140508
  10. XEPLION [Suspect]
     Active Substance: PALIPERIDONE PALMITATE
     Indication: KLEPTOMANIA
     Route: 030
     Dates: start: 20140218

REACTIONS (6)
  - Hypopituitarism [Recovered/Resolved]
  - Metabolic syndrome [Recovered/Resolved]
  - Product use issue [Unknown]
  - Lymphoedema [Recovered/Resolved]
  - Diabetes insipidus [Recovered/Resolved]
  - Dyspnoea [Recovered/Resolved]
